FAERS Safety Report 16502737 (Version 1)
Quarter: 2019Q3

REPORT INFORMATION
  Report Type: Spontaneous
  Country: IT (occurrence: IT)
  Receive Date: 20190701
  Receipt Date: 20190701
  Transmission Date: 20191004
  Serious: Yes (Hospitalization)
  Sender: FDA-Public Use
  Company Number: PHHY2019IT147434

PATIENT
  Age: 27 Year
  Sex: Female

DRUGS (1)
  1. CARBAMAZEPINE. [Suspect]
     Active Substance: CARBAMAZEPINE
     Indication: PRODUCT USED FOR UNKNOWN INDICATION
     Dosage: 6 G, UNK
     Route: 065

REACTIONS (7)
  - Rhabdomyolysis [Recovering/Resolving]
  - Intentional overdose [Recovered/Resolved]
  - Sinus tachycardia [Recovered/Resolved]
  - Myalgia [Recovered/Resolved]
  - Oedema [Recovered/Resolved]
  - Toxicity to various agents [Recovering/Resolving]
  - Coma [Recovered/Resolved]
